FAERS Safety Report 12710169 (Version 1)
Quarter: 2016Q3

REPORT INFORMATION
  Report Type: Spontaneous
  Country: None (occurrence: None)
  Receive Date: 20160901
  Receipt Date: 20160901
  Transmission Date: 20161109
  Serious: Yes (Other)
  Sender: FDA-Public Use
  Company Number: GB-ALSI-201600224

PATIENT
  Age: 21 Year
  Sex: Female

DRUGS (1)
  1. NITROUS OXIDE. [Suspect]
     Active Substance: NITROUS OXIDE
     Indication: SUBSTANCE ABUSE
     Route: 055
     Dates: start: 20160310

REACTIONS (6)
  - Road traffic accident [None]
  - Abnormal behaviour [None]
  - Rib fracture [None]
  - Drug abuse [None]
  - Pneumothorax [None]
  - Impaired driving ability [None]

NARRATIVE: CASE EVENT DATE: 20160310
